FAERS Safety Report 9070486 (Version 2)
Quarter: 2013Q3

REPORT INFORMATION
  Report Type: Spontaneous
  Country: None (occurrence: JP)
  Receive Date: 20130129
  Receipt Date: 20130710
  Transmission Date: 20140515
  Serious: Yes (Life-Threatening)
  Sender: FDA-Public Use
  Company Number: JP-CUBIST PHARMACEUTICAL, INC.-2013CBST000068

PATIENT
  Age: 78 Year
  Sex: Male

DRUGS (1)
  1. CUBICIN [Suspect]
     Indication: POST PROCEDURAL INFECTION
     Dosage: 350 MG, QD
     Route: 041
     Dates: start: 20121112, end: 20121203

REACTIONS (1)
  - Eosinophilic pneumonia [Recovered/Resolved]
